FAERS Safety Report 5933631-8 (Version None)
Quarter: 2008Q4

REPORT INFORMATION
  Report Type: 
  Country: None (occurrence: None)
  Receive Date: 20081029
  Receipt Date: 20081020
  Transmission Date: 20090506
  Serious: Yes (Hospitalization)
  Sender: FDA-Public Use
  Company Number: FR-CELGENEUS-056-20785-08091517

PATIENT
  Sex: Male
  Weight: 65 kg

DRUGS (5)
  1. THALIDOMIDE [Suspect]
     Indication: MULTIPLE MYELOMA
     Route: 048
     Dates: start: 20080909, end: 20080924
  2. THALIDOMIDE [Suspect]
     Route: 048
     Dates: start: 20081010
  3. VELCADE [Suspect]
     Indication: MULTIPLE MYELOMA
     Route: 051
     Dates: start: 20080909, end: 20080919
  4. DEXAMETHASONE 4MG TAB [Suspect]
     Indication: MULTIPLE MYELOMA
     Route: 048
     Dates: start: 20080909, end: 20080912
  5. MORPHINE SULFATE INJ [Concomitant]
     Indication: PAIN
     Route: 048
     Dates: start: 20080806

REACTIONS (2)
  - ATRIAL FLUTTER [None]
  - BRONCHOPNEUMOPATHY [None]
